FAERS Safety Report 17674979 (Version 2)
Quarter: 2020Q2

REPORT INFORMATION
  Report Type: Report from Study
  Country: US (occurrence: US)
  Receive Date: 20200416
  Receipt Date: 20200609
  Transmission Date: 20200714
  Serious: Yes (Other)
  Sender: FDA-Public Use
  Company Number: US-MYLANLABS-2020M1011471

PATIENT
  Sex: Male
  Weight: 90.7 kg

DRUGS (1)
  1. GLATIRAMER ACETATE INJECTION [Suspect]
     Active Substance: GLATIRAMER ACETATE
     Indication: RELAPSING-REMITTING MULTIPLE SCLEROSIS
     Dosage: 40 MILLIGRAM, 3XW
     Route: 058
     Dates: start: 202001

REACTIONS (6)
  - Drug ineffective [Unknown]
  - Injection site swelling [Unknown]
  - Injection site induration [Unknown]
  - Injection site pain [Unknown]
  - Injection site warmth [Unknown]
  - Injection site mass [Unknown]
